FAERS Safety Report 8648854 (Version 3)
Quarter: 2012Q4

REPORT INFORMATION
  Report Type: 
  Country: US (occurrence: US)
  Receive Date: 20120704
  Receipt Date: 20120828
  Transmission Date: 20130627
  Serious: No
  Sender: FDA-Public Use
  Company Number: US-BIOGENIDEC-2012BI022505

PATIENT
  Age: 60 Year
  Sex: Female

DRUGS (3)
  1. AVONEX [Suspect]
     Indication: MULTIPLE SCLEROSIS
     Route: 030
     Dates: start: 20120611
  2. TRAMADOL [Concomitant]
     Indication: PAIN IN EXTREMITY
  3. OMEPRAZOLE [Concomitant]
     Indication: ABDOMINAL DISCOMFORT

REACTIONS (13)
  - Feeling drunk [Recovered/Resolved]
  - Dysarthria [Recovered/Resolved]
  - Ocular icterus [Not Recovered/Not Resolved]
  - Chromaturia [Recovered/Resolved]
  - Vulval abscess [Not Recovered/Not Resolved]
  - Contusion [Not Recovered/Not Resolved]
  - Aphagia [Recovered/Resolved]
  - Eye pain [Unknown]
  - Injection site bruising [Not Recovered/Not Resolved]
  - Hot flush [Recovered/Resolved]
  - Nausea [Recovered/Resolved]
  - Dizziness [Recovered/Resolved]
  - Headache [Recovered/Resolved]
